FAERS Safety Report 22100054 (Version 2)
Quarter: 2023Q4

REPORT INFORMATION
  Report Type: Spontaneous
  Country: JP (occurrence: JP)
  Receive Date: 20230315
  Receipt Date: 20231003
  Transmission Date: 20240109
  Serious: Yes (Other)
  Sender: FDA-Public Use
  Company Number: JP-Eisai Medical Research-EC-2023-135724

PATIENT
  Sex: Female

DRUGS (6)
  1. LENVIMA [Suspect]
     Active Substance: LENVATINIB
     Indication: Endometrial cancer
     Route: 048
     Dates: start: 20221028
  2. LENVIMA [Suspect]
     Active Substance: LENVATINIB
     Route: 048
  3. LENVIMA [Suspect]
     Active Substance: LENVATINIB
     Route: 048
  4. LENVIMA [Suspect]
     Active Substance: LENVATINIB
     Route: 048
  5. KEYTRUDA [Suspect]
     Active Substance: PEMBROLIZUMAB
     Indication: Endometrial cancer
     Route: 042
     Dates: start: 20221028, end: 202211
  6. KEYTRUDA [Suspect]
     Active Substance: PEMBROLIZUMAB
     Route: 042

REACTIONS (1)
  - Interstitial lung disease [Recovering/Resolving]
